FAERS Safety Report 11518873 (Version 12)
Quarter: 2019Q4

REPORT INFORMATION
  Report Type: Spontaneous
  Country: US (occurrence: US)
  Receive Date: 20150917
  Receipt Date: 20191127
  Transmission Date: 20200122
  Serious: No
  Sender: FDA-Public Use
  Company Number: US-PFIZER INC-2015303131

PATIENT
  Age: 28 Year
  Sex: Male
  Weight: 91 kg

DRUGS (14)
  1. LYRICA [Suspect]
     Active Substance: PREGABALIN
     Dosage: 300 MG, 3X/DAY
     Route: 048
     Dates: start: 20180726
  2. KLONOPIN [Concomitant]
     Active Substance: CLONAZEPAM
     Dosage: 0.5 MG, UNK
  3. CELEXA [Concomitant]
     Active Substance: CITALOPRAM HYDROBROMIDE
     Dosage: 40 MG, UNK
  4. ACAI. [Concomitant]
     Active Substance: ACAI
     Dosage: UNK
     Route: 048
  5. LYRICA [Suspect]
     Active Substance: PREGABALIN
     Dosage: 300 MG, 3X/DAY (TAKE 2 CAPSULES)
     Route: 048
     Dates: start: 20161020
  6. ADDERALL [Concomitant]
     Active Substance: AMPHETAMINE ASPARTATE\AMPHETAMINE SULFATE\DEXTROAMPHETAMINE SACCHARATE\DEXTROAMPHETAMINE SULFATE
     Dosage: 30 MG, UNK
  7. VITAMIN E [Concomitant]
     Active Substance: .ALPHA.-TOCOPHEROL
     Dosage: 100 IU, UNK
  8. TORADOL [Concomitant]
     Active Substance: KETOROLAC TROMETHAMINE
     Dosage: 10 MG, UNK
  9. LYRICA [Suspect]
     Active Substance: PREGABALIN
     Indication: NEUROPATHY PERIPHERAL
     Dosage: 300 MG, 3X/DAY (150 MG CAPSULE; DISP: TAKE 2 CAPSULES BY MOUTH 3 (THREE) TIMES DAILY)
     Route: 048
     Dates: start: 20160725
  10. LYRICA [Suspect]
     Active Substance: PREGABALIN
     Dosage: 300 MG, 3X/DAY (DIRECTIONS: 2 PILLS TID)
     Route: 048
     Dates: start: 20170404
  11. LYRICA [Suspect]
     Active Substance: PREGABALIN
     Dosage: 300 MG, 3X/DAY (DIRECTIONS: 2 PILLS TID)
     Route: 048
     Dates: start: 20170222
  12. LYRICA [Suspect]
     Active Substance: PREGABALIN
     Dosage: 300 MG, 3X/DAY (2 CAPS TID (3 TIMES A DAY))
  13. LYRICA [Suspect]
     Active Substance: PREGABALIN
     Indication: SCIATIC NERVE NEUROPATHY
     Dosage: 300 MG, 3X/DAY
     Route: 048
     Dates: start: 2008
  14. FISH OIL [Concomitant]
     Active Substance: FISH OIL
     Dosage: 1000 MG, UNK

REACTIONS (2)
  - Prescribed overdose [Unknown]
  - Pain [Unknown]

NARRATIVE: CASE EVENT DATE: 2008
